FAERS Safety Report 5216725-4 (Version None)
Quarter: 2007Q1

REPORT INFORMATION
  Report Type: 
  Country: None (occurrence: None)
  Receive Date: 20061130
  Receipt Date: 20060530
  Transmission Date: 20070707
  Serious: Yes (Hospitalization)
  Sender: FDA-Public Use
  Company Number: US200603000299

PATIENT
  Age: 32 Year
  Sex: Male
  Weight: 149.7 kg

DRUGS (6)
  1. ZYPREXA [Suspect]
     Indication: BIPOLAR DISORDER
     Dosage: SEE IMAGE
     Dates: start: 20021101, end: 20030501
  2. ZYPREXA [Suspect]
     Indication: BIPOLAR DISORDER
     Dosage: SEE IMAGE
     Dates: start: 20020904
  3. ZYPREXA [Suspect]
     Indication: BIPOLAR DISORDER
     Dosage: SEE IMAGE
     Dates: start: 20030601
  4. ARIPIPRAZOLE (ARIPIPRAZOLE) [Concomitant]
  5. CELEXA [Concomitant]
  6. LEXAPRO /USA/ (ESCITALOPRAM) [Concomitant]

REACTIONS (9)
  - DIABETES MELLITUS [None]
  - DIABETIC KETOACIDOSIS [None]
  - HYPERLIPIDAEMIA [None]
  - OBESITY [None]
  - POLYDIPSIA [None]
  - POLYURIA [None]
  - PRESCRIBED OVERDOSE [None]
  - WEIGHT DECREASED [None]
  - WEIGHT INCREASED [None]
